FAERS Safety Report 4525845-9 (Version None)
Quarter: 2004Q4

REPORT INFORMATION
  Report Type: 
  Country: None (occurrence: None)
  Receive Date: 20041124
  Receipt Date: 20040223
  Transmission Date: 20050328
  Serious: Yes (Hospitalization, Other)
  Sender: FDA-Public Use
  Company Number: 2003120238

PATIENT
  Age: 75 Year
  Sex: Female
  Weight: 78.0187 kg

DRUGS (10)
  1. TIKOSYN [Suspect]
     Indication: ATRIAL FIBRILLATION
     Dosage: 500 MCG (BID), ORAL
     Route: 048
     Dates: start: 20030101
  2. PAROXETINE HCL [Concomitant]
  3. ISOSORBIDE MONONITRATE [Concomitant]
  4. LEVOSALBUTAMOL (LEVOSALBUTAMOL) [Concomitant]
  5. ZOLPIDEM TARTRATE [Concomitant]
  6. FUROSEMIDE [Concomitant]
  7. POTASSIUM (POTASSIUM) [Concomitant]
  8. SALBUTAMOL (SALBUTAMOL) [Concomitant]
  9. CALCIUM CARBONATE (CALCIUM CARBONATE) [Concomitant]
  10. MONTELUKAST (MONTELUKAST) [Concomitant]

REACTIONS (1)
  - ATRIAL FIBRILLATION [None]
